FAERS Safety Report 17840056 (Version 1)
Quarter: 2020Q2

REPORT INFORMATION
  Report Type: Spontaneous
  Country: US (occurrence: US)
  Receive Date: 20200529
  Receipt Date: 20200529
  Transmission Date: 20200714
  Serious: Yes (Other)
  Sender: FDA-Public Use
  Company Number: US-SUNOVION-2020SUN001600

PATIENT
  Age: 79 Year
  Sex: Female

DRUGS (1)
  1. LONHALA MAGNAIR [Suspect]
     Active Substance: GLYCOPYRROLATE
     Dosage: UNK
     Route: 055
     Dates: start: 2019, end: 2019

REACTIONS (2)
  - Pneumonia [Unknown]
  - Therapy cessation [Unknown]

NARRATIVE: CASE EVENT DATE: 2019
